FAERS Safety Report 13852600 (Version 1)
Quarter: 2017Q3

REPORT INFORMATION
  Report Type: Spontaneous
  Country: CA (occurrence: CA)
  Receive Date: 20170810
  Receipt Date: 20170810
  Transmission Date: 20171127
  Serious: Yes (Other)
  Sender: FDA-Public Use
  Company Number: CA-ORION CORPORATION ORION PHARMA-TREX2017-2394

PATIENT
  Age: 81 Year
  Sex: Female

DRUGS (3)
  1. METHOTREXATE (TRADE NAME UNKNOWN) [Suspect]
     Active Substance: METHOTREXATE
     Route: 065
     Dates: end: 20170730
  2. LYRICA [Suspect]
     Active Substance: PREGABALIN
     Dosage: IN MORNING
     Route: 065
     Dates: end: 20170715
  3. LYRICA [Suspect]
     Active Substance: PREGABALIN
     Dosage: AT NIGHT
     Route: 065
     Dates: end: 20170715

REACTIONS (13)
  - Muscle spasms [Not Recovered/Not Resolved]
  - Frustration tolerance decreased [Unknown]
  - Decreased appetite [Not Recovered/Not Resolved]
  - Headache [Not Recovered/Not Resolved]
  - Insomnia [Not Recovered/Not Resolved]
  - Dyspnoea [Recovering/Resolving]
  - Memory impairment [Not Recovered/Not Resolved]
  - Peripheral swelling [Recovering/Resolving]
  - Diarrhoea [Not Recovered/Not Resolved]
  - Abdominal distension [Recovering/Resolving]
  - Renal impairment [Recovering/Resolving]
  - Blood pressure fluctuation [Unknown]
  - Feeling abnormal [Not Recovered/Not Resolved]
